FAERS Safety Report 5613332-6 (Version None)
Quarter: 2008Q1

REPORT INFORMATION
  Report Type: 
  Country: None (occurrence: None)
  Receive Date: 20080129
  Receipt Date: 20080121
  Transmission Date: 20080703
  Serious: Yes (Death, Hospitalization)
  Sender: FDA-Public Use
  Company Number: 2008SP001620

PATIENT
  Age: 37 Year
  Sex: Male
  Weight: 115 kg

DRUGS (6)
  1. TEMODAL [Suspect]
     Indication: GLIOBLASTOMA
     Dosage: 220 MG;QD
     Dates: end: 20070716
  2. TEMODAL [Suspect]
     Indication: GLIOBLASTOMA
     Dosage: 220 MG;QD
     Dates: start: 20070801
  3. ZOFRAN [Suspect]
     Indication: DRUG USE FOR UNKNOWN INDICATION
     Dosage: 8 MG; QD
  4. PANTOPRAZOLE SODIUM [Suspect]
     Dosage: 40 MG;QD
     Dates: start: 20070301, end: 20070701
  5. PANTOPRAZOLE SODIUM [Suspect]
     Dosage: 40 MG;QD
     Dates: start: 20071001
  6. DEXAMETHASONE [Suspect]
     Indication: BRAIN OEDEMA
     Dosage: 4 MG;TID
     Dates: start: 20070301

REACTIONS (4)
  - ALANINE AMINOTRANSFERASE INCREASED [None]
  - ASPARTATE AMINOTRANSFERASE INCREASED [None]
  - DISEASE PROGRESSION [None]
  - GAMMA-GLUTAMYLTRANSFERASE INCREASED [None]
